FAERS Safety Report 6525311-5 (Version None)
Quarter: 2009Q4

REPORT INFORMATION
  Report Type: 
  Country: None (occurrence: None)
  Receive Date: 20091222
  Receipt Date: 20091204
  Transmission Date: 20100525
  Serious: Yes (Other)
  Sender: FDA-Public Use
  Company Number: AUR-APL-2009-01506

PATIENT
  Age: 76 Year
  Sex: Male

DRUGS (8)
  1. SERTRALINE HCL [Suspect]
     Indication: DEPRESSED MOOD
     Dosage: 50MG - ORAL
     Route: 048
  2. MIRAPEX [Suspect]
     Indication: PARKINSON'S DISEASE
     Dosage: ORAL
     Route: 048
  3. CIMETIDINE [Concomitant]
  4. FUROSEMIDE [Concomitant]
  5. MADOPAR (BENSERAZIDE HCL) [Concomitant]
  6. QUININE [Concomitant]
  7. SPIRONOLACTONE [Concomitant]
  8. INFUMORPH [Concomitant]

REACTIONS (2)
  - EYE DISORDER [None]
  - VITREOUS FLOATERS [None]
